FAERS Safety Report 6357811-5 (Version None)
Quarter: 2009Q3

REPORT INFORMATION
  Report Type: 
  Country: None (occurrence: None)
  Receive Date: 20090911
  Receipt Date: 20090908
  Transmission Date: 20100115
  Serious: Yes (Death, Hospitalization, Other)
  Sender: FDA-Public Use
  Company Number: 2008SP008669

PATIENT
  Age: 56 Year
  Sex: Female
  Weight: 45 kg

DRUGS (5)
  1. TEMODAL [Suspect]
     Dosage: SEE IMAGE
     Route: 048
     Dates: start: 20050215, end: 20060831
  2. TEMODAL [Suspect]
     Dosage: SEE IMAGE
     Route: 048
     Dates: start: 20060929, end: 20061003
  3. TEMODAL [Suspect]
     Dosage: SEE IMAGE
     Route: 048
     Dates: start: 20061028, end: 20061102
  4. TEMODAL [Suspect]
     Dosage: SEE IMAGE
     Route: 048
     Dates: start: 20061124, end: 20061128
  5. TEMODAL [Suspect]
     Dosage: SEE IMAGE
     Route: 048
     Dates: start: 20061223, end: 20061227

REACTIONS (5)
  - ANAEMIA [None]
  - CONVULSION [None]
  - HAEMATOCHEZIA [None]
  - MELAENA [None]
  - SHOCK HAEMORRHAGIC [None]
